FAERS Safety Report 5339940-8 (Version None)
Quarter: 2007Q2

REPORT INFORMATION
  Report Type: 
  Country: None (occurrence: None)
  Receive Date: 20070531
  Receipt Date: 20070518
  Transmission Date: 20071010
  Serious: Yes (Hospitalization)
  Sender: FDA-Public Use
  Company Number: US-AMGEN-US225364

PATIENT
  Sex: Male

DRUGS (16)
  1. EPOGEN [Suspect]
     Indication: DIALYSIS
     Dates: start: 20040101
  2. IRON [Concomitant]
  3. CALCIUM CARBONATE [Concomitant]
  4. FLOMAX [Concomitant]
  5. ASPIRIN [Concomitant]
  6. CELEXA [Concomitant]
  7. FOLIC ACID [Concomitant]
  8. ASCORBIC ACID [Concomitant]
  9. COREG [Concomitant]
  10. CLARITIN [Concomitant]
  11. ZOCOR [Concomitant]
  12. PLAVIX [Concomitant]
  13. ACIPHEX [Concomitant]
  14. FISH OIL [Concomitant]
  15. NEPHRO-CAPS [Concomitant]
  16. LISINOPRIL [Concomitant]

REACTIONS (3)
  - HAEMOGLOBIN DECREASED [None]
  - HYPOKINESIA [None]
  - MALAISE [None]
